FAERS Safety Report 8896626 (Version 2)
Quarter: 2013Q2

REPORT INFORMATION
  Report Type: Spontaneous
  Country: JP (occurrence: JP)
  Receive Date: 20121108
  Receipt Date: 20130424
  Transmission Date: 20140414
  Serious: Yes (Other)
  Sender: FDA-Public Use
  Company Number: PHHY2012JP101867

PATIENT
  Age: 62 Year
  Sex: Female

DRUGS (4)
  1. VINCRISTINE [Suspect]
     Indication: ACUTE LYMPHOCYTIC LEUKAEMIA
  2. PREDNISOLONE SANDOZ [Suspect]
     Indication: ACUTE LYMPHOCYTIC LEUKAEMIA
  3. ADRIAMYCIN [Suspect]
     Indication: ACUTE LYMPHOCYTIC LEUKAEMIA
  4. CYCLOPHOSPHAMIDE [Suspect]
     Indication: ACUTE LYMPHOCYTIC LEUKAEMIA

REACTIONS (12)
  - Posterior reversible encephalopathy syndrome [Recovered/Resolved]
  - Pyrexia [Recovered/Resolved]
  - Depressed level of consciousness [Recovered/Resolved]
  - Stevens-Johnson syndrome [Recovered/Resolved]
  - Dermatitis exfoliative [Recovered/Resolved]
  - Fall [Recovered/Resolved]
  - Sepsis [Recovered/Resolved]
  - Cerebral haemorrhage [Recovered/Resolved]
  - Hyponatraemia [Recovered/Resolved]
  - Pseudomonas infection [Unknown]
  - Hypertension [Recovered/Resolved]
  - Febrile neutropenia [Recovered/Resolved]
